FAERS Safety Report 13177072 (Version 2)
Quarter: 2017Q3

REPORT INFORMATION
  Report Type: Report from Study
  Country: US (occurrence: US)
  Receive Date: 20170201
  Receipt Date: 20170731
  Transmission Date: 20171127
  Serious: No
  Sender: FDA-Public Use
  Company Number: US-EXELIXIS-CABO-16006998

PATIENT
  Sex: Male

DRUGS (16)
  1. GABAPENTIN. [Concomitant]
     Active Substance: GABAPENTIN
  2. SYNTHROID [Concomitant]
     Active Substance: LEVOTHYROXINE SODIUM
  3. CABOMETYX [Suspect]
     Active Substance: CABOZANTINIB S-MALATE
     Indication: RENAL CANCER
     Dosage: 60 MG, QD
     Route: 048
     Dates: start: 20160806
  4. ALLOPURINOL. [Concomitant]
     Active Substance: ALLOPURINOL
  5. CHLORTHALIDONE. [Concomitant]
     Active Substance: CHLORTHALIDONE
  6. VITAMIN B [Concomitant]
     Active Substance: VITAMIN B
  7. CARAFATE [Concomitant]
     Active Substance: SUCRALFATE
  8. PRAVASTATIN. [Concomitant]
     Active Substance: PRAVASTATIN
  9. CALCIUM [Concomitant]
     Active Substance: CALCIUM
  10. PROTONIX [Concomitant]
     Active Substance: PANTOPRAZOLE SODIUM
  11. CABOMETYX [Suspect]
     Active Substance: CABOZANTINIB S-MALATE
     Dosage: 20 MG, QD
     Route: 048
     Dates: start: 20170408, end: 2017
  12. SINGULAIR [Concomitant]
     Active Substance: MONTELUKAST SODIUM
  13. MAGNESIUM [Concomitant]
     Active Substance: MAGNESIUM
  14. CABOMETYX [Suspect]
     Active Substance: CABOZANTINIB S-MALATE
     Indication: NEOPLASM MALIGNANT
     Dosage: 40 MG, QD
     Route: 048
     Dates: start: 20170106
  15. VALSARTAN. [Suspect]
     Active Substance: VALSARTAN
  16. POTASSIUM [Concomitant]
     Active Substance: POTASSIUM

REACTIONS (15)
  - Tooth infection [Recovering/Resolving]
  - Hypertension [Not Recovered/Not Resolved]
  - Gingivitis [Unknown]
  - Metastases to lung [Unknown]
  - Hyperchlorhydria [Unknown]
  - Dysphonia [Not Recovered/Not Resolved]
  - Fear [Unknown]
  - Muscle spasms [Unknown]
  - Neuropathy peripheral [Not Recovered/Not Resolved]
  - Pruritus [Recovered/Resolved]
  - Drug interaction [Not Recovered/Not Resolved]
  - Gastrointestinal pain [Not Recovered/Not Resolved]
  - Faeces hard [Not Recovered/Not Resolved]
  - Constipation [Unknown]
  - Diarrhoea [Not Recovered/Not Resolved]
